FAERS Safety Report 9737124 (Version 1)
Quarter: 2013Q4

REPORT INFORMATION
  Report Type: Spontaneous
  Country: US (occurrence: US)
  Receive Date: 20131206
  Receipt Date: 20131206
  Transmission Date: 20140711
  Serious: Yes (Hospitalization)
  Sender: FDA-Public Use
  Company Number: US-BAYER-2013-147480

PATIENT
  Age: 46 Year
  Sex: Female
  Weight: 63.04 kg

DRUGS (38)
  1. YASMIN [Suspect]
  2. YAZ [Suspect]
  3. OCELLA [Suspect]
  4. EPOETIN NOS [Concomitant]
     Dosage: EVERY DIALYSIS
     Route: 042
  5. FERRLECIT [Concomitant]
     Dosage: 62.5 MG, WEEKLY
     Route: 042
  6. ZEMPLAR [Concomitant]
     Dosage: 5 MCG/24HR, UNK
     Route: 042
  7. PERCOCET [Concomitant]
     Dosage: UNK
     Route: 048
     Dates: start: 20080925
  8. NEPHROCAPS [Concomitant]
  9. VISIPAQUE [IODIXANOL,TROMETAMOL] [Concomitant]
     Dosage: UNK
     Dates: start: 20080925, end: 20081006
  10. VERSED [Concomitant]
     Dosage: UNK
     Dates: start: 20081006
  11. LIDOCAINE [Concomitant]
     Dosage: UNK
     Dates: start: 20080925, end: 20081013
  12. HEPARIN [Concomitant]
     Dosage: 5000 U, UNK
     Dates: start: 20080925, end: 20081013
  13. BETADINE [Concomitant]
     Dosage: UNK
     Dates: start: 20080925, end: 20081013
  14. FENTANYL [Concomitant]
     Dosage: UNK
     Dates: start: 20080925, end: 20081013
  15. PROPOFOL [Concomitant]
     Dosage: UNK
     Dates: start: 20080925, end: 20081013
  16. DILAUDID [Concomitant]
     Dosage: 2 MG, UNK
     Route: 042
     Dates: start: 20080925, end: 20081013
  17. METOCLOPRAMIDE [Concomitant]
     Dosage: 10 MG, UNK
     Route: 042
     Dates: start: 20080925, end: 20081013
  18. ONDANSETRON [Concomitant]
     Dosage: 4 MG, UNK
     Route: 042
     Dates: start: 20130925, end: 20131003
  19. ANCEF [Concomitant]
     Dosage: 1 G, UNK
     Route: 042
     Dates: start: 20130925, end: 20131003
  20. BUPIVACAINE [Concomitant]
     Dosage: UNK
     Dates: start: 20081013
  21. THROMBIN [Concomitant]
     Dosage: 5000 U, UNK
     Dates: start: 20131013
  22. ABILIFY [Concomitant]
     Dosage: 15 MG, UNK
     Route: 048
  23. COLACE [Concomitant]
     Dosage: 100 MG, UNK
     Route: 048
  24. COREG [Concomitant]
     Dosage: 6.25 MG, UNK
     Route: 048
  25. DIOVAN [Concomitant]
     Dosage: 40 MG, UNK
  26. EFFEXOR [Concomitant]
     Dosage: 150 MG; 75 MG
     Route: 048
  27. OXYCODONE [Concomitant]
     Dosage: 5 MG, UNK
     Route: 048
  28. PEPCID [Concomitant]
     Dosage: 20 MG, UNK
     Route: 048
  29. SYNTHROID [Concomitant]
     Dosage: 0.125 MCG/24HR, UNK
     Route: 048
  30. TEGRETOL [Concomitant]
     Dosage: 400 MG, UNK
     Route: 048
  31. XANAX [Concomitant]
     Dosage: 1 MG, UNK
     Route: 048
  32. ZYPREXA [Concomitant]
     Dosage: 10 MG, UNK
     Route: 048
  33. STRATTERA [Concomitant]
     Dosage: 40 MG, UNK
     Route: 048
  34. STELAZINE [Concomitant]
     Dosage: 5 MG, UNK
     Route: 048
  35. PHOSLO [Concomitant]
  36. LEVAQUIN [Concomitant]
     Indication: URINARY TRACT INFECTION
     Dosage: 500 MG, UNK
     Route: 048
  37. VANCOMYCIN [Concomitant]
     Indication: URINARY TRACT INFECTION
  38. GENTAMICIN [Concomitant]
     Indication: URINARY TRACT INFECTION

REACTIONS (2)
  - Subdural haematoma [Recovering/Resolving]
  - Pulmonary embolism [Recovered/Resolved]
